FAERS Safety Report 16279022 (Version 6)
Quarter: 2019Q2

REPORT INFORMATION
  Report Type: Spontaneous
  Country: US (occurrence: US)
  Receive Date: 20190506
  Receipt Date: 20190606
  Transmission Date: 20190711
  Serious: Yes (Other)
  Sender: FDA-Public Use
  Company Number: US-ALLERGAN-1915411US

PATIENT
  Age: 39 Year
  Sex: Female

DRUGS (4)
  1. JUVEDERM ULTRA [Suspect]
     Active Substance: HYALURONIC ACID
     Indication: DERMAL FILLER INJECTION
     Dosage: 1 CC, SINGLE
     Route: 065
     Dates: start: 20190329, end: 20190329
  2. KYBELLA [Suspect]
     Active Substance: DEOXYCHOLIC ACID
     Indication: FAT TISSUE INCREASED
     Dosage: 2 CC, SINGLE
     Route: 058
     Dates: start: 20190329, end: 20190329
  3. KYBELLA [Suspect]
     Active Substance: DEOXYCHOLIC ACID
     Dosage: 2 CC, SINGLE
     Route: 058
     Dates: start: 20190329, end: 20190329
  4. KYBELLA [Suspect]
     Active Substance: DEOXYCHOLIC ACID
     Dosage: 2 CC, SINGLE
     Route: 058
     Dates: start: 20190329, end: 20190329

REACTIONS (48)
  - Facial wasting [Unknown]
  - Palpitations [Unknown]
  - Eye pain [Unknown]
  - Eye irritation [Unknown]
  - Malpositioned teeth [Unknown]
  - Hypoaesthesia oral [Unknown]
  - Skin lesion [Unknown]
  - Skin exfoliation [Unknown]
  - Dyspnoea [Unknown]
  - Pain in jaw [Unknown]
  - Thyroid pain [Unknown]
  - Pain [Unknown]
  - Muscular weakness [Unknown]
  - Scar [Unknown]
  - Arterial injury [Unknown]
  - Anxiety [Unknown]
  - Syncope [Unknown]
  - Hypersensitivity [Unknown]
  - Swollen tongue [Unknown]
  - Fatigue [Unknown]
  - Speech disorder [Unknown]
  - Muscle injury [Unknown]
  - Arterial occlusive disease [Unknown]
  - Panic attack [Unknown]
  - Nerve injury [Unknown]
  - Facial paralysis [Not Recovered/Not Resolved]
  - Chest pain [Unknown]
  - Dizziness [Unknown]
  - Dehydration [Unknown]
  - Balance disorder [Unknown]
  - Visual impairment [Unknown]
  - Product administered at inappropriate site [Unknown]
  - Erythema [Unknown]
  - Skin burning sensation [Unknown]
  - Groin pain [Unknown]
  - Nervous system disorder [Unknown]
  - Tissue injury [Unknown]
  - Anaphylactic reaction [Unknown]
  - Dysarthria [Unknown]
  - Fear of death [Unknown]
  - Dysphagia [Unknown]
  - Shock symptom [Unknown]
  - Infection [Unknown]
  - Hypoaesthesia [Unknown]
  - Bone pain [Unknown]
  - Skin discolouration [Unknown]
  - Paraesthesia [Unknown]
  - Hallucination, visual [Unknown]

NARRATIVE: CASE EVENT DATE: 20190329
